FAERS Safety Report 4757902-6 (Version None)
Quarter: 2005Q3

REPORT INFORMATION
  Report Type: 
  Country: None (occurrence: None)
  Receive Date: 20050831
  Receipt Date: 20050823
  Transmission Date: 20060218
  Serious: Yes (Other)
  Sender: FDA-Public Use
  Company Number: 200516342US

PATIENT
  Age: 81 Year
  Sex: Female

DRUGS (2)
  1. LANTUS [Suspect]
     Indication: DIABETES MELLITUS NON-INSULIN-DEPENDENT
     Dosage: DOSE UNIT: UNITS
     Dates: start: 20040701, end: 20040701
  2. SYNTHROID [Concomitant]
     Dosage: DOSE: UNK
     Route: 048

REACTIONS (2)
  - BLOOD GLUCOSE INCREASED [None]
  - PALPITATIONS [None]
